FAERS Safety Report 7864525-9 (Version None)
Quarter: 2011Q4

REPORT INFORMATION
  Report Type: 
  Country: None (occurrence: None)
  Receive Date: 20111028
  Receipt Date: 20111024
  Transmission Date: 20120403
  Serious: No
  Sender: FDA-Public Use
  Company Number: US-PFIZER INC-2011259362

PATIENT
  Age: 48 Year
  Sex: Female

DRUGS (5)
  1. EFFEXOR [Suspect]
     Indication: ANXIETY
  2. TOPROL-XL [Concomitant]
     Indication: ARRHYTHMIA
     Dosage: UNK
  3. EFFEXOR [Suspect]
     Indication: FIBROMYALGIA
     Dosage: 37.5 MG, 1X/DAY
     Route: 048
  4. THYROID TAB [Suspect]
     Indication: HYPOTHYROIDISM
     Dosage: 30 MG, 1X/DAY
     Route: 048
     Dates: start: 20111004, end: 20111005
  5. THYROID TAB [Suspect]
     Dosage: 15 MG, 1X/DAY
     Route: 048
     Dates: start: 20111006

REACTIONS (2)
  - DIARRHOEA [None]
  - NAUSEA [None]
